FAERS Safety Report 26086527 (Version 1)
Quarter: 2025Q4

REPORT INFORMATION
  Report Type: Spontaneous
  Country: CN (occurrence: CN)
  Receive Date: 20251125
  Receipt Date: 20251125
  Transmission Date: 20260118
  Serious: Yes (Hospitalization)
  Sender: ROCHE
  Company Number: CN-BoehringerIngelheim-2025-BI-109024

PATIENT
  Age: 84 Year
  Sex: Female
  Weight: 85 kg

DRUGS (1)
  1. ALTEPLASE [Suspect]
     Active Substance: ALTEPLASE
     Indication: Cerebral infarction
     Route: 042
     Dates: start: 20251024, end: 20251024

REACTIONS (2)
  - Cerebral haemorrhage [Unknown]
  - Reperfusion injury [Recovering/Resolving]

NARRATIVE: CASE EVENT DATE: 20251024
